FAERS Safety Report 4947264-3 (Version None)
Quarter: 2006Q1

REPORT INFORMATION
  Report Type: 
  Country: None (occurrence: None)
  Receive Date: 20060313
  Receipt Date: 20060227
  Transmission Date: 20060701
  Serious: Yes (Hospitalization)
  Sender: FDA-Public Use
  Company Number: FABR-11417

PATIENT
  Age: 44 Year
  Sex: Male
  Weight: 99 kg

DRUGS (1)
  1. FABRAZYME [Suspect]
     Indication: FABRY'S DISEASE
     Dosage: 105 MG QW2KS IV
     Route: 042
     Dates: start: 20030701

REACTIONS (4)
  - CARDIAC VALVE DISEASE [None]
  - CENTRAL LINE INFECTION [None]
  - DIABETES MELLITUS [None]
  - RENAL CELL CARCINOMA STAGE UNSPECIFIED [None]
